FAERS Safety Report 11308804 (Version 3)
Quarter: 2017Q1

REPORT INFORMATION
  Report Type: Spontaneous
  Country: US (occurrence: US)
  Receive Date: 20150724
  Receipt Date: 20170307
  Transmission Date: 20170428
  Serious: Yes (Other)
  Sender: FDA-Public Use
  Company Number: US-ELI_LILLY_AND_COMPANY-US201507004767

PATIENT
  Sex: Female

DRUGS (5)
  1. ATIVAN [Concomitant]
     Active Substance: LORAZEPAM
     Indication: INSOMNIA
     Dosage: 0.5 MG, PRN
     Route: 048
  2. PROVIGIL [Concomitant]
     Active Substance: MODAFINIL
     Indication: CHRONIC FATIGUE SYNDROME
     Dosage: 200 MG, QD
     Route: 048
  3. HYDROXYZINE HYDROCHLORIDE. [Concomitant]
     Active Substance: HYDROXYZINE HYDROCHLORIDE
     Indication: ANXIETY
     Dosage: 25 MG, TID
     Route: 048
  4. NORCO [Concomitant]
     Active Substance: ACETAMINOPHEN\HYDROCODONE BITARTRATE
     Indication: BACK PAIN
     Dosage: 10-325 MG, PRN
     Route: 048
  5. CYMBALTA [Suspect]
     Active Substance: DULOXETINE HYDROCHLORIDE
     Indication: DEPRESSION
     Dosage: 60 MG, QD
     Route: 048
     Dates: start: 20120614, end: 20141030

REACTIONS (25)
  - Crying [Unknown]
  - Irritability [Unknown]
  - Nausea [Unknown]
  - Headache [Unknown]
  - Mood swings [Unknown]
  - Diarrhoea [Unknown]
  - Asthenia [Unknown]
  - Weight increased [Unknown]
  - Lethargy [Unknown]
  - Fatigue [Unknown]
  - Sensory disturbance [Unknown]
  - Dysphoria [Unknown]
  - Restless legs syndrome [Unknown]
  - Insomnia [Unknown]
  - Dizziness [Unknown]
  - Agitation [Unknown]
  - Suicidal ideation [Unknown]
  - Anxiety [Unknown]
  - Confusional state [Unknown]
  - Off label use [Unknown]
  - Sleep disorder [Unknown]
  - Paraesthesia [Unknown]
  - Vertigo [Unknown]
  - Vomiting [Unknown]
  - Drug withdrawal syndrome [Unknown]
